FAERS Safety Report 26218378 (Version 1)
Quarter: 2025Q4

REPORT INFORMATION
  Report Type: Spontaneous
  Country: JP (occurrence: JP)
  Receive Date: 20251231
  Receipt Date: 20251231
  Transmission Date: 20260117
  Serious: Yes (Hospitalization)
  Sender: PFIZER
  Company Number: JP-PFIZER INC-202500219779

PATIENT
  Age: 85 Year
  Sex: Male

DRUGS (7)
  1. VYNDAQEL [Suspect]
     Active Substance: TAFAMIDIS MEGLUMINE
     Indication: Cardiac amyloidosis
     Dosage: 80 MG, 1X/DAY (TAKING 4 CAPSULES, ONCE A DAY)
     Route: 048
  2. TICLOPIDINE [Concomitant]
     Active Substance: TICLOPIDINE
     Dosage: 1 DF, 2X/DAY, IN THE MORNING AND IN THE EVENING
  3. FUROSEMIDE [Concomitant]
     Active Substance: FUROSEMIDE
     Dosage: 1 DF, 1X/DAY, IN THE MORNING
  4. RABEPRAZOLE [Concomitant]
     Active Substance: RABEPRAZOLE
     Dosage: 1 DF, 1X/DAY, IN THE MORNING
  5. MIYA-BM [Concomitant]
     Active Substance: CLOSTRIDIUM BUTYRICUM SPORES STRAIN M-55
     Dosage: 1 G, 1X/DAY, IN THE MORNING
  6. MAGNESIUM OXIDE [Concomitant]
     Active Substance: MAGNESIUM OXIDE
     Dosage: 0.66 G, 1X/DAY, IN THE EVENING
  7. ZOLPIDEM [Concomitant]
     Active Substance: ZOLPIDEM TARTRATE
     Dosage: 1 DF, 1X/DAY, BEFORE SLEEP

REACTIONS (2)
  - Device related infection [Unknown]
  - Carotid artery stenosis [Unknown]
